FAERS Safety Report 15213737 (Version 2)
Quarter: 2018Q4

REPORT INFORMATION
  Report Type: Spontaneous
  Country: US (occurrence: US)
  Receive Date: 20180730
  Receipt Date: 20181127
  Transmission Date: 20190204
  Serious: Yes (Other)
  Sender: FDA-Public Use
  Company Number: US-SA-2017SA266697

PATIENT
  Age: 58 Year
  Sex: Female
  Weight: 63 kg

DRUGS (6)
  1. TAXOTERE [Suspect]
     Active Substance: DOCETAXEL
     Dosage: , (AT 75 MG/M2) (OF 10 MG/ML)130 MG, Q3W
     Route: 042
     Dates: start: 20080418, end: 20080418
  2. TAXOTERE [Suspect]
     Active Substance: DOCETAXEL
     Indication: BREAST CANCER FEMALE
     Dosage: 130 MG, Q3W, (AT 75 MG/M2) (OF 10 MG/ML)
     Route: 042
     Dates: start: 20071221, end: 20071221
  3. ADRIAMYCIN [Concomitant]
     Active Substance: DOXORUBICIN HYDROCHLORIDE
  4. AMLODIPINE [Concomitant]
     Active Substance: AMLODIPINE BESYLATE
  5. LOSARTAN. [Concomitant]
     Active Substance: LOSARTAN
  6. NEOSAR [Concomitant]
     Active Substance: CYCLOPHOSPHAMIDE

REACTIONS (6)
  - Alopecia [Recovering/Resolving]
  - Anxiety [Unknown]
  - Emotional distress [Unknown]
  - Psychological trauma [Unknown]
  - Impaired quality of life [Unknown]
  - Pain [Unknown]
